FAERS Safety Report 9917337 (Version 1)
Quarter: 2014Q1

REPORT INFORMATION
  Report Type: Spontaneous
  Country: BR (occurrence: BR)
  Receive Date: 20140221
  Receipt Date: 20140221
  Transmission Date: 20141002
  Serious: Yes (Hospitalization)
  Sender: FDA-Public Use
  Company Number: BR-MPIJNJ-2014MPI000470

PATIENT
  Sex: 0

DRUGS (10)
  1. VELCADE [Suspect]
     Indication: PLASMA CELL MYELOMA
     Dosage: 1.3 MG/M2, ON DAYS 1, 4, 8, 11 EVERY 21 DAYS
     Route: 058
     Dates: start: 20130805, end: 20131230
  2. DEXAMETHASONE [Suspect]
     Dosage: 20 MG, CYCLIC (DAYS 1, 2, 4, 5, 8, 9, 11 AND 12 OF EVERY 21 DAYS)
     Route: 048
     Dates: end: 20131230
  3. AAS [Concomitant]
     Dosage: UNK
     Dates: start: 201111
  4. NPH INSULIN [Concomitant]
     Indication: DIABETES MELLITUS
     Dosage: UNK
     Dates: start: 201111
  5. INSULIN REGULAR                    /01223201/ [Concomitant]
     Indication: DIABETES MELLITUS
  6. METFORMIN [Concomitant]
     Indication: DIABETES MELLITUS
     Dosage: UNK
     Dates: start: 2006, end: 20140102
  7. ENALAPRIL [Concomitant]
     Indication: HYPERTENSION
     Dosage: UNK
     Dates: start: 2009
  8. HIDROCLOROTIAZIDA [Concomitant]
     Indication: HYPERTENSION
     Dosage: UNK
     Dates: start: 2009
  9. AMLODIPINA                         /00972401/ [Concomitant]
     Indication: HYPERTENSION
     Dosage: UNK
     Dates: start: 2009
  10. OMEPRAZOLE [Concomitant]
     Dosage: UNK
     Dates: start: 201009

REACTIONS (1)
  - Diabetes mellitus inadequate control [Recovered/Resolved]
